FAERS Safety Report 19891663 (Version 1)
Quarter: 2021Q3

REPORT INFORMATION
  Report Type: Spontaneous
  Country: CN (occurrence: CN)
  Receive Date: 20210928
  Receipt Date: 20210928
  Transmission Date: 20211014
  Serious: Yes (Other)
  Sender: FDA-Public Use
  Company Number: CN-PFIZER INC-202101209756

PATIENT
  Age: 37 Year
  Sex: Female

DRUGS (1)
  1. MISOPROSTOL. [Suspect]
     Active Substance: MISOPROSTOL
     Indication: THERAPEUTIC PROCEDURE
     Dosage: 0.6 MG
     Route: 048
     Dates: start: 20210907

REACTIONS (2)
  - Off label use [Unknown]
  - Vaginal haemorrhage [Unknown]

NARRATIVE: CASE EVENT DATE: 20210907
